FAERS Safety Report 25705813 (Version 1)
Quarter: 2025Q3

REPORT INFORMATION
  Report Type: Spontaneous
  Country: US (occurrence: None)
  Receive Date: 20250819
  Receipt Date: 20250819
  Transmission Date: 20251021
  Serious: Yes (Hospitalization)
  Sender: FDA-CTU
  Company Number: None

PATIENT
  Age: 86 Year
  Sex: Male
  Weight: 76 kg

DRUGS (4)
  1. IVOSIDENIB [Suspect]
     Active Substance: IVOSIDENIB
     Indication: Acute myeloid leukaemia
     Dosage: 250 MG TWICE A DAY ORAL
     Route: 048
     Dates: start: 20250718
  2. JAKAFI [Suspect]
     Active Substance: RUXOLITINIB
     Indication: Acute myeloid leukaemia
     Dosage: 5 MG TWICE A DAY ORAL
     Route: 048
     Dates: start: 20250718
  3. IVOSIDENIB [Concomitant]
     Active Substance: IVOSIDENIB
     Dates: start: 20250718
  4. Ruixolitnib [Concomitant]
     Dates: start: 20250718

REACTIONS (2)
  - Infusion site haemorrhage [None]
  - Anaemia [None]

NARRATIVE: CASE EVENT DATE: 20250818
